FAERS Safety Report 17301122 (Version 7)
Quarter: 2022Q4

REPORT INFORMATION
  Report Type: Report from Study
  Country: US (occurrence: US)
  Receive Date: 20200122
  Receipt Date: 20221101
  Transmission Date: 20230113
  Serious: Yes (Other)
  Sender: FDA-Public Use
  Company Number: US-PFIZER INC-2020011017

PATIENT
  Age: 57 Year
  Sex: Female
  Weight: 86 kg

DRUGS (6)
  1. LYRICA [Suspect]
     Active Substance: PREGABALIN
     Indication: Mononeuropathy multiplex
     Dosage: 150 MILLIGRAM, TID (150 MG, 3X/DAY)
     Route: 048
     Dates: start: 201812, end: 20200103
  2. LYRICA [Suspect]
     Active Substance: PREGABALIN
     Indication: Burning sensation
     Dosage: 150 MILLIGRAM, TID (150 MG, 3X/DAY (90 DAYS))
     Route: 065
  3. LYRICA [Suspect]
     Active Substance: PREGABALIN
     Indication: Neuropathy peripheral
  4. LYRICA [Suspect]
     Active Substance: PREGABALIN
     Indication: Pain
  5. AMITRIPTYLINE [Concomitant]
     Active Substance: AMITRIPTYLINE
     Dosage: UNK
     Route: 065
     Dates: start: 201812
  6. DULOXETINE [Concomitant]
     Active Substance: DULOXETINE
     Indication: Nerve injury
     Dosage: 30 MILLIGRAM, PM (30 MG, PM (AT NIGHT))
     Route: 048
     Dates: start: 201912

REACTIONS (8)
  - Parkinson^s disease [Unknown]
  - Musculoskeletal stiffness [Unknown]
  - Peripheral coldness [Unknown]
  - Joint swelling [Unknown]
  - Peripheral swelling [Unknown]
  - Memory impairment [Unknown]
  - Bronchitis [Unknown]
  - Cough [Unknown]

NARRATIVE: CASE EVENT DATE: 20200103
